FAERS Safety Report 4735803-7 (Version None)
Quarter: 2005Q3

REPORT INFORMATION
  Report Type: 
  Country: None (occurrence: None)
  Receive Date: 20050802
  Receipt Date: 20050720
  Transmission Date: 20060218
  Serious: Yes (Life-Threatening, Hospitalization)
  Sender: FDA-Public Use
  Company Number: MK200507-0208-1

PATIENT
  Age: 64 Year
  Sex: Male

DRUGS (2)
  1. OPTIRAY 320 [Suspect]
     Indication: COMPUTERISED TOMOGRAM
     Dosage: 120 ML, ONE TIME, IV
     Route: 042
     Dates: start: 20050719, end: 20050719
  2. OPTIRAY 320 [Suspect]
     Indication: COMPUTERISED TOMOGRAM ABDOMEN
     Dosage: 120 ML, ONE TIME, IV
     Route: 042
     Dates: start: 20050719, end: 20050719

REACTIONS (3)
  - AIR EMBOLISM [None]
  - CARDIAC DISORDER [None]
  - WRONG TECHNIQUE IN DRUG USAGE PROCESS [None]
